FAERS Safety Report 4931649-5 (Version None)
Quarter: 2006Q1

REPORT INFORMATION
  Report Type: 
  Country: None (occurrence: None)
  Receive Date: 20060303
  Receipt Date: 20051128
  Transmission Date: 20060701
  Serious: Yes (Other)
  Sender: FDA-Public Use
  Company Number: US-BRISTOL-MYERS SQUIBB COMPANY-13195979

PATIENT
  Age: 54 Year
  Sex: Female

DRUGS (1)
  1. ERBITUX [Suspect]

REACTIONS (5)
  - ERYTHEMA [None]
  - EYE PRURITUS [None]
  - HYPOTENSION [None]
  - NAUSEA [None]
  - VOMITING [None]
